FAERS Safety Report 7553841-6 (Version None)
Quarter: 2011Q2

REPORT INFORMATION
  Report Type: 
  Country: None (occurrence: None)
  Receive Date: 20110609
  Receipt Date: 20110526
  Transmission Date: 20111010
  Serious: Yes (Hospitalization)
  Sender: FDA-Public Use
  Company Number: 1000021420

PATIENT
  Sex: Female

DRUGS (1)
  1. ESCITALOPRAM [Suspect]
     Dosage: 10 MG (10 MG,1 IN 1 D),ORAL
     Route: 048

REACTIONS (5)
  - ANGINA PECTORIS [None]
  - EXTRASYSTOLES [None]
  - BALANCE DISORDER [None]
  - FATIGUE [None]
  - VOMITING [None]
